FAERS Safety Report 14245168 (Version 2)
Quarter: 2018Q2

REPORT INFORMATION
  Report Type: Spontaneous
  Country: US (occurrence: US)
  Receive Date: 20171202
  Receipt Date: 20180423
  Transmission Date: 20180711
  Serious: Yes (Other)
  Sender: FDA-Public Use
  Company Number: US-SUN PHARMACEUTICAL INDUSTRIES LTD-2017US-156048

PATIENT
  Age: 24 Year
  Sex: Male

DRUGS (1)
  1. ABSORICA [Suspect]
     Active Substance: ISOTRETINOIN
     Indication: ACNE CYSTIC
     Dosage: UNK, BID
     Route: 065
     Dates: start: 201704, end: 201707

REACTIONS (5)
  - Anxiety [Unknown]
  - Cellulitis [Unknown]
  - Pyogenic granuloma [Recovering/Resolving]
  - Hyperthyroidism [Not Recovered/Not Resolved]
  - Psychotic disorder [Unknown]

NARRATIVE: CASE EVENT DATE: 2017
